FAERS Safety Report 7527286-9 (Version None)
Quarter: 2011Q2

REPORT INFORMATION
  Report Type: 
  Country: None (occurrence: None)
  Receive Date: 20110603
  Receipt Date: 20110603
  Transmission Date: 20111010
  Serious: Yes (Other)
  Sender: FDA-Public Use
  Company Number: None

PATIENT
  Age: 86 Year
  Sex: Female
  Weight: 77.1115 kg

DRUGS (1)
  1. NITROFURANTOIN [Suspect]
     Indication: URINARY TRACT INFECTION
     Dosage: 1 CAPSULE 2 A DAY
     Dates: start: 20110414

REACTIONS (8)
  - CHILLS [None]
  - PERIPHERAL COLDNESS [None]
  - INFLUENZA [None]
  - COUGH [None]
  - DRY MOUTH [None]
  - PAIN OF SKIN [None]
  - MYALGIA [None]
  - MUSCULOSKELETAL CHEST PAIN [None]
